FAERS Safety Report 17552045 (Version 1)
Quarter: 2020Q1

REPORT INFORMATION
  Report Type: Spontaneous
  Country: GB (occurrence: GB)
  Receive Date: 20200317
  Receipt Date: 20200317
  Transmission Date: 20200409
  Serious: Yes (Hospitalization, Other)
  Sender: FDA-Public Use
  Company Number: GB-GALDERMA-GB2020012746

PATIENT
  Age: 60 Year
  Sex: Male

DRUGS (1)
  1. DOXYCYCLINE. [Suspect]
     Active Substance: DOXYCYCLINE
     Indication: PRODUCT USED FOR UNKNOWN INDICATION
     Dosage: UNSURE
     Route: 048
     Dates: start: 201909, end: 201909

REACTIONS (1)
  - Myasthenia gravis crisis [Not Recovered/Not Resolved]

NARRATIVE: CASE EVENT DATE: 201909
